FAERS Safety Report 5234934-5 (Version None)
Quarter: 2007Q1

REPORT INFORMATION
  Report Type: 
  Country: None (occurrence: None)
  Receive Date: 20070209
  Receipt Date: 20070131
  Transmission Date: 20070707
  Serious: Yes (Other)
  Sender: FDA-Public Use
  Company Number: US-PFIZER INC-2007009020

PATIENT
  Sex: Male

DRUGS (7)
  1. XANAX XR [Interacting]
     Indication: PANIC DISORDER
     Dosage: DAILY DOSE:5.75MG
  2. AZITHROMYCIN [Suspect]
     Indication: STAPHYLOCOCCAL INFECTION
  3. RIFAMPIN [Interacting]
     Indication: STAPHYLOCOCCAL INFECTION
  4. ALLEGRA [Concomitant]
  5. CORTICOSTEROIDS [Concomitant]
     Route: 045
  6. DARVOCET [Concomitant]
  7. LOSARTAN POSTASSIUM [Concomitant]

REACTIONS (4)
  - ANXIETY [None]
  - BIPOLAR II DISORDER [None]
  - DRUG INTERACTION [None]
  - STAPHYLOCOCCAL INFECTION [None]
